FAERS Safety Report 18536341 (Version 3)
Quarter: 2021Q1

REPORT INFORMATION
  Report Type: Spontaneous
  Country: US (occurrence: US)
  Receive Date: 20201123
  Receipt Date: 20210319
  Transmission Date: 20210419
  Serious: No
  Sender: FDA-Public Use
  Company Number: US-PFIZER INC-2020460038

PATIENT
  Age: 49 Year
  Sex: Female

DRUGS (2)
  1. XELJANZ XR [Suspect]
     Active Substance: TOFACITINIB CITRATE
     Dosage: 11 MG
     Dates: start: 20201120, end: 20210120
  2. XELJANZ XR [Suspect]
     Active Substance: TOFACITINIB CITRATE
     Dosage: 11 MG
     Dates: start: 20201019

REACTIONS (7)
  - Nasal congestion [Unknown]
  - Respiratory tract congestion [Unknown]
  - Sluggishness [Unknown]
  - Fatigue [Unknown]
  - Alopecia [Unknown]
  - Dyspnoea [Unknown]
  - Oral herpes [Unknown]

NARRATIVE: CASE EVENT DATE: 2020
